FAERS Safety Report 4626343-4 (Version None)
Quarter: 2005Q2

REPORT INFORMATION
  Report Type: 
  Country: None (occurrence: None)
  Receive Date: 20050404
  Receipt Date: 20050331
  Transmission Date: 20051028
  Serious: Yes (Hospitalization)
  Sender: FDA-Public Use
  Company Number: US-GLAXOSMITHKLINE-A0552115A

PATIENT
  Sex: Female

DRUGS (6)
  1. ZOVIRAX [Suspect]
     Indication: HERPES ZOSTER
     Dosage: 500MG THREE TIMES PER DAY
     Route: 065
     Dates: start: 20050328
  2. ZOVIRAX [Suspect]
     Route: 048
  3. CHEMOTHERAPY [Concomitant]
  4. METHOTREXATE [Concomitant]
  5. FLUOROURACIL [Concomitant]
  6. CEFAZOLIN [Concomitant]

REACTIONS (2)
  - CRYSTAL URINE [None]
  - DRUG INEFFECTIVE [None]
